FAERS Safety Report 11175596 (Version 2)
Quarter: 2015Q2

REPORT INFORMATION
  Report Type: Report from Study
  Country: JP (occurrence: JP)
  Receive Date: 20150609
  Receipt Date: 20150622
  Transmission Date: 20150821
  Serious: Yes (Hospitalization, Other)
  Sender: FDA-Public Use
  Company Number: PHHY2014JP116009

PATIENT
  Age: 33 Year
  Sex: Male

DRUGS (52)
  1. CLOZARIL [Suspect]
     Active Substance: CLOZAPINE
     Dosage: 25 MG, QD
     Route: 048
     Dates: start: 20131116, end: 20131116
  2. MAGNESIUM OXIDE. [Concomitant]
     Active Substance: MAGNESIUM OXIDE
     Dosage: 2 G, QD
     Route: 048
     Dates: start: 20140827
  3. LAC-B [Concomitant]
     Active Substance: BIFIDOBACTERIUM SPP.
     Indication: PRODUCT USED FOR UNKNOWN INDICATION
     Dosage: 3 G, QD
     Route: 048
     Dates: start: 20131128
  4. CLOZARIL [Suspect]
     Active Substance: CLOZAPINE
     Dosage: 275 MG, QD
     Route: 048
     Dates: start: 20140131, end: 20140131
  5. CLOZARIL [Suspect]
     Active Substance: CLOZAPINE
     Dosage: 450 MG, QD
     Route: 048
     Dates: start: 20140307, end: 20140313
  6. CLOZARIL [Suspect]
     Active Substance: CLOZAPINE
     Dosage: 475 MG,QD
     Route: 048
     Dates: start: 20140314, end: 20140320
  7. CLOZARIL [Suspect]
     Active Substance: CLOZAPINE
     Dosage: 525 MG, QD
     Route: 048
     Dates: start: 20140328, end: 20140417
  8. CLOZARIL [Suspect]
     Active Substance: CLOZAPINE
     Dosage: 600 MG, QD
     Route: 048
     Dates: start: 20140829
  9. LAMICTAL [Concomitant]
     Active Substance: LAMOTRIGINE
     Indication: PRODUCT USED FOR UNKNOWN INDICATION
     Dosage: 200 MG, QD
     Route: 048
     Dates: start: 20131115
  10. LIMAS [Concomitant]
     Active Substance: LITHIUM CARBONATE
     Indication: SCHIZOPHRENIA, RESIDUAL TYPE
     Dosage: 400 MG, QD
     Route: 048
     Dates: start: 20131115, end: 20140508
  11. SELENICA-R [Concomitant]
     Active Substance: SELENIUM
     Dosage: 200 MG, QD
     Route: 048
     Dates: start: 20131227, end: 20140109
  12. MAGNESIUM OXIDE. [Concomitant]
     Active Substance: MAGNESIUM OXIDE
     Indication: PRODUCT USED FOR UNKNOWN INDICATION
     Dosage: 0.6 G, QD
     Route: 048
     Dates: start: 20131115, end: 20131212
  13. YOKUKANSAN [Concomitant]
     Active Substance: HERBALS
     Indication: PRODUCT USED FOR UNKNOWN INDICATION
     Dosage: 7.5 G, QD
     Route: 048
     Dates: start: 20131115, end: 20131212
  14. CLOZARIL [Suspect]
     Active Substance: CLOZAPINE
     Dosage: 50 MG,QD
     Route: 048
     Dates: start: 20131117, end: 20131121
  15. CLOZARIL [Suspect]
     Active Substance: CLOZAPINE
     Dosage: 75 MG, QD
     Route: 048
     Dates: start: 20131122, end: 20131124
  16. CLOZARIL [Suspect]
     Active Substance: CLOZAPINE
     Dosage: 125 MG,QD
     Route: 048
     Dates: start: 20131129, end: 20131201
  17. CLOZARIL [Suspect]
     Active Substance: CLOZAPINE
     Dosage: 350 MG, QD
     Route: 048
     Dates: start: 20140207, end: 20140213
  18. MAGMITT [Concomitant]
     Active Substance: MAGNESIUM OXIDE
     Indication: PRODUCT USED FOR UNKNOWN INDICATION
     Dosage: 990 MG, QD
     Route: 048
     Dates: start: 20131129
  19. CLOZARIL [Suspect]
     Active Substance: CLOZAPINE
     Dosage: 150 MG, QD
     Route: 048
     Dates: start: 20131202, end: 20131205
  20. CLOZARIL [Suspect]
     Active Substance: CLOZAPINE
     Dosage: 575 MG,QD
     Route: 048
     Dates: start: 20140516, end: 20140605
  21. CLOZARIL [Suspect]
     Active Substance: CLOZAPINE
     Dosage: 600 MG, QD
     Route: 048
     Dates: start: 20140606
  22. BLONANSERIN [Concomitant]
     Active Substance: BLONANSERIN
     Dosage: 16 MG, QD
     Route: 048
     Dates: start: 20131129, end: 20131205
  23. KEPPRA [Concomitant]
     Active Substance: LEVETIRACETAM
     Dosage: 2000 MG, QD
     Route: 048
     Dates: start: 20141030
  24. ROZEREM [Concomitant]
     Active Substance: RAMELTEON
     Indication: PRODUCT USED FOR UNKNOWN INDICATION
     Dosage: 8 MG, QD
     Route: 048
     Dates: start: 20131115, end: 20131212
  25. CLOZARIL [Suspect]
     Active Substance: CLOZAPINE
     Indication: SCHIZOPHRENIA, RESIDUAL TYPE
     Dosage: 12.5 MG, QD
     Route: 048
     Dates: start: 20131115, end: 20131115
  26. CLOZARIL [Suspect]
     Active Substance: CLOZAPINE
     Dosage: 200 MG, QD
     Route: 048
     Dates: start: 20131209, end: 20140123
  27. CLOZARIL [Suspect]
     Active Substance: CLOZAPINE
     Dosage: 550 MG, QD
     Route: 048
     Dates: start: 20140418, end: 20140424
  28. OLANZAPINE. [Concomitant]
     Active Substance: OLANZAPINE
     Dosage: 10 MG, QD
     Route: 048
     Dates: start: 20131129, end: 20131205
  29. KEPPRA [Concomitant]
     Active Substance: LEVETIRACETAM
     Dosage: 1500 MG, QD
     Route: 048
     Dates: start: 20141001, end: 20141029
  30. LIMAS [Concomitant]
     Active Substance: LITHIUM CARBONATE
     Dosage: 200 MG, QD
     Route: 048
     Dates: start: 20140509, end: 20140522
  31. SELENICA-R [Concomitant]
     Active Substance: SELENIUM
     Indication: PRODUCT USED FOR UNKNOWN INDICATION
     Dosage: 320 MG, QD
     Route: 048
     Dates: start: 20131115, end: 20131226
  32. CLOZARIL [Suspect]
     Active Substance: CLOZAPINE
     Dosage: 225 MG, QD
     Route: 048
     Dates: start: 20140124, end: 20140124
  33. CLOZARIL [Suspect]
     Active Substance: CLOZAPINE
     Dosage: 575 MG, QD
     Route: 048
     Dates: start: 20140425
  34. BLONANSERIN [Concomitant]
     Active Substance: BLONANSERIN
     Indication: SCHIZOPHRENIA, RESIDUAL TYPE
     Dosage: 24 MG, QD
     Route: 048
     Dates: start: 20131115, end: 20131121
  35. BLONANSERIN [Concomitant]
     Active Substance: BLONANSERIN
     Dosage: 8 MG, QD
     Route: 048
     Dates: start: 20131206, end: 20131212
  36. CLOZARIL [Suspect]
     Active Substance: CLOZAPINE
     Dosage: 175 MG, QD
     Route: 048
     Dates: start: 20131206, end: 20131208
  37. CLOZARIL [Suspect]
     Active Substance: CLOZAPINE
     Dosage: 250 MG, QD
     Route: 048
     Dates: start: 20140125, end: 20140130
  38. CLOZARIL [Suspect]
     Active Substance: CLOZAPINE
     Dosage: 300 MG, QD
     Route: 048
     Dates: start: 20140201, end: 20140206
  39. CLOZARIL [Suspect]
     Active Substance: CLOZAPINE
     Dosage: 400 MG, QD
     Route: 048
     Dates: start: 20140214, end: 20140227
  40. CLOZARIL [Suspect]
     Active Substance: CLOZAPINE
     Dosage: 425 MG,QD
     Route: 048
     Dates: start: 20140228, end: 20140306
  41. OLANZAPINE. [Concomitant]
     Active Substance: OLANZAPINE
     Indication: SCHIZOPHRENIA, RESIDUAL TYPE
     Dosage: 20 MG, QD
     Route: 048
     Dates: start: 20131115, end: 20131128
  42. PROMAC [Concomitant]
     Active Substance: NITROFURANTOIN
     Indication: PRODUCT USED FOR UNKNOWN INDICATION
     Dosage: 75 MG, QD
     Route: 048
     Dates: start: 20131115
  43. SILECE [Concomitant]
     Active Substance: FLUNITRAZEPAM
     Dosage: 1 MG, UNK
     Route: 048
     Dates: start: 20131227
  44. AKIRIDEN [Concomitant]
     Active Substance: BIPERIDEN
     Indication: PRODUCT USED FOR UNKNOWN INDICATION
     Dosage: 4 MG, QD
     Route: 048
     Dates: start: 20140827
  45. CLOZARIL [Suspect]
     Active Substance: CLOZAPINE
     Dosage: 100 MG,QD
     Route: 048
     Dates: start: 20131125, end: 20131128
  46. CLOZARIL [Suspect]
     Active Substance: CLOZAPINE
     Dosage: 500 MG, QD
     Route: 048
     Dates: start: 20140321, end: 20140327
  47. BLONANSERIN [Concomitant]
     Active Substance: BLONANSERIN
     Dosage: 20 MG, QD
     Route: 048
     Dates: start: 20131122, end: 20131128
  48. KEPPRA [Concomitant]
     Active Substance: LEVETIRACETAM
     Indication: PRODUCT USED FOR UNKNOWN INDICATION
     Dosage: 2000 MG, QD
     Route: 048
     Dates: start: 20131115, end: 20140424
  49. KEPPRA [Concomitant]
     Active Substance: LEVETIRACETAM
     Dosage: 1500 MG, QD
     Route: 048
     Dates: start: 20140425, end: 20140501
  50. KEPPRA [Concomitant]
     Active Substance: LEVETIRACETAM
     Dosage: 1000 MG, QD
     Route: 048
     Dates: start: 20140502, end: 20140930
  51. SILECE [Concomitant]
     Active Substance: FLUNITRAZEPAM
     Indication: PRODUCT USED FOR UNKNOWN INDICATION
     Dosage: 2 MG, QD
     Route: 048
     Dates: start: 20131115, end: 20131226
  52. BESACOLIN [Concomitant]
     Active Substance: BETHANECHOL CHLORIDE
     Indication: PROPHYLAXIS
     Dosage: 30 MG, QD
     Route: 048
     Dates: start: 20131128

REACTIONS (13)
  - Generalised tonic-clonic seizure [Not Recovered/Not Resolved]
  - Tachycardia [Not Recovered/Not Resolved]
  - Salivary hypersecretion [Recovering/Resolving]
  - Blood pressure decreased [Recovered/Resolved]
  - Urinary retention [Not Recovered/Not Resolved]
  - Blood glucose increased [Not Recovered/Not Resolved]
  - Muscle spasms [Unknown]
  - Depressed level of consciousness [Unknown]
  - Tremor [Not Recovered/Not Resolved]
  - Red blood cell count decreased [Not Recovered/Not Resolved]
  - Haematocrit decreased [Not Recovered/Not Resolved]
  - Haemoglobin decreased [Unknown]
  - Obsessive-compulsive disorder [Recovered/Resolved]

NARRATIVE: CASE EVENT DATE: 20131127
